FAERS Safety Report 4413183-4 (Version None)
Quarter: 2004Q3

REPORT INFORMATION
  Report Type: 
  Country: None (occurrence: None)
  Receive Date: 20040802
  Receipt Date: 20040720
  Transmission Date: 20050211
  Serious: Yes (Hospitalization, Other)
  Sender: FDA-Public Use
  Company Number: JP-GLAXOSMITHKLINE-B0340348A

PATIENT
  Age: 79 Year
  Sex: Female

DRUGS (12)
  1. VALTREX [Suspect]
     Indication: HERPES ZOSTER
     Dosage: 1000MG PER DAY
     Route: 048
     Dates: start: 20040703, end: 20040707
  2. PROTECADIN [Concomitant]
     Dosage: 10MG PER DAY
     Route: 048
  3. ROCALTROL [Concomitant]
     Dosage: .25MCG PER DAY
     Route: 048
  4. 8-HOUR BAYER [Concomitant]
     Dosage: 100MG PER DAY
     Route: 048
  5. PRECIPITATED CALCIUM CARBONATE [Concomitant]
     Dosage: 1TAB THREE TIMES PER DAY
     Route: 048
  6. SIGMART [Concomitant]
     Dosage: 5MG THREE TIMES PER DAY
     Route: 048
  7. CLARITIN [Concomitant]
     Dosage: 10MG PER DAY
     Route: 048
  8. NITRODERM [Concomitant]
     Route: 062
  9. ZYLORIC [Concomitant]
     Dosage: 1TAB THREE TIMES PER WEEK
     Route: 048
  10. LANIRAPID [Concomitant]
     Dosage: 1TAB THREE TIMES PER WEEK
     Route: 048
  11. RISUMIC [Concomitant]
     Dosage: 10MG THREE TIMES PER WEEK
     Route: 048
  12. EPOGIN [Concomitant]
     Dosage: 1500IU THREE TIMES PER WEEK

REACTIONS (3)
  - DEPRESSED LEVEL OF CONSCIOUSNESS [None]
  - DYSLALIA [None]
  - HEMIPLEGIA [None]
